FAERS Safety Report 14082529 (Version 1)
Quarter: 2017Q4

REPORT INFORMATION
  Report Type: Spontaneous
  Country: US (occurrence: None)
  Receive Date: 20171013
  Receipt Date: 20171013
  Transmission Date: 20180321
  Serious: Yes (Other)
  Sender: FDA-Public Use
  Company Number: None

PATIENT
  Age: 68 Year
  Sex: Female
  Weight: 78.02 kg

DRUGS (9)
  1. AZELASTINE. [Concomitant]
     Active Substance: AZELASTINE HYDROCHLORIDE
  2. REPATHA [Suspect]
     Active Substance: EVOLOCUMAB
     Indication: TYPE IIA HYPERLIPIDAEMIA
     Route: 061
     Dates: start: 20170606, end: 20170923
  3. METOPROLOL. [Concomitant]
     Active Substance: METOPROLOL
  4. TRAVATAN [Concomitant]
     Active Substance: TRAVOPROST
  5. OMEGA 3 [Concomitant]
     Active Substance: OMEGA-3 FATTY ACIDS
  6. ANUCORT HC [Concomitant]
  7. VITAMIN B12 [Concomitant]
     Active Substance: CYANOCOBALAMIN
  8. VITAMIN D [Concomitant]
     Active Substance: CHOLECALCIFEROL
  9. PROBIOTICS [Concomitant]
     Active Substance: PROBIOTICS NOS

REACTIONS (13)
  - Wheezing [None]
  - Fatigue [None]
  - Urticaria [None]
  - Sinus disorder [None]
  - Rash [None]
  - Sneezing [None]
  - Cough [None]
  - Upper-airway cough syndrome [None]
  - Insomnia [None]
  - Productive cough [None]
  - Contusion [None]
  - Furuncle [None]
  - Nasopharyngitis [None]

NARRATIVE: CASE EVENT DATE: 20170923
